FAERS Safety Report 25786220 (Version 1)
Quarter: 2025Q3

REPORT INFORMATION
  Report Type: Spontaneous
  Country: US (occurrence: US)
  Receive Date: 20250910
  Receipt Date: 20250910
  Transmission Date: 20251020
  Serious: No
  Sender: ROCHE
  Company Number: US-ROCHE-10000381037

PATIENT
  Age: 14 Year
  Sex: Male
  Weight: 54.43 kg

DRUGS (6)
  1. ACTEMRA [Suspect]
     Active Substance: TOCILIZUMAB
     Indication: Juvenile idiopathic arthritis
     Route: 058
     Dates: start: 202507
  2. ACTEMRA [Suspect]
     Active Substance: TOCILIZUMAB
     Route: 058
  3. VYVANSE [Concomitant]
     Active Substance: LISDEXAMFETAMINE DIMESYLATE
     Indication: Attention deficit hyperactivity disorder
     Route: 048
  4. LEFLUNOMIDE [Concomitant]
     Active Substance: LEFLUNOMIDE
     Indication: Juvenile idiopathic arthritis
     Route: 048
  5. TRAZODONE [Concomitant]
     Active Substance: TRAZODONE HYDROCHLORIDE
     Indication: Insomnia
     Route: 048
  6. CELECOXIB [Concomitant]
     Active Substance: CELECOXIB
     Indication: Juvenile idiopathic arthritis
     Route: 048

REACTIONS (3)
  - Product administration error [Unknown]
  - Product complaint [Unknown]
  - No adverse event [Unknown]

NARRATIVE: CASE EVENT DATE: 20250903
